FAERS Safety Report 9335527 (Version 1)
Quarter: 2013Q2

REPORT INFORMATION
  Report Type: Spontaneous
  Country: US (occurrence: US)
  Receive Date: 20130605
  Receipt Date: 20130605
  Transmission Date: 20140414
  Serious: Yes (Death)
  Sender: FDA-Public Use
  Company Number: US-GLAXOSMITHKLINE-A1025048A

PATIENT
  Age: 64 Year
  Sex: Female

DRUGS (8)
  1. ADVAIR [Suspect]
     Indication: CHRONIC OBSTRUCTIVE PULMONARY DISEASE
     Dosage: 1PUFF TWICE PER DAY
     Route: 055
  2. THEOPHYLLINE [Concomitant]
  3. ALDACTONE [Concomitant]
  4. LASIX [Concomitant]
  5. PAXIL [Concomitant]
  6. XANAX [Concomitant]
  7. SOMA [Concomitant]
  8. OXYCODONE [Concomitant]

REACTIONS (1)
  - Chronic obstructive pulmonary disease [Fatal]
